FAERS Safety Report 18871663 (Version 3)
Quarter: 2021Q1

REPORT INFORMATION
  Report Type: Report from Study
  Country: CR (occurrence: CR)
  Receive Date: 20210210
  Receipt Date: 20210310
  Transmission Date: 20210420
  Serious: Yes (Hospitalization)
  Sender: FDA-Public Use
  Company Number: NVSC2021CR027517

PATIENT
  Sex: Female
  Weight: 68 kg

DRUGS (3)
  1. EXFORGE HCT [Suspect]
     Active Substance: AMLODIPINE BESYLATE\HYDROCHLOROTHIAZIDE\VALSARTAN
     Dosage: 1 DF, QD, IN THE MORNING, APPROXIMATELY 11 YEARS AGO
     Route: 065
  2. EXFORGE HCT [Suspect]
     Active Substance: AMLODIPINE BESYLATE\HYDROCHLOROTHIAZIDE\VALSARTAN
     Indication: HYPERTENSION
     Dosage: UNK, MORE THAN 12 YEARS AGO APPROXIMATELY
     Route: 065
  3. CORYOL [GINKGO BILOBA EXTRACT] [Suspect]
     Active Substance: GINKGO
     Indication: PRODUCT USED FOR UNKNOWN INDICATION
     Dosage: 1 DF, AT NIGHT
     Route: 065

REACTIONS (5)
  - Foot fracture [Unknown]
  - Limb injury [Unknown]
  - Fall [Recovered/Resolved]
  - Dysarthria [Unknown]
  - Limb discomfort [Unknown]
